FAERS Safety Report 15096196 (Version 1)
Quarter: 2018Q2

REPORT INFORMATION
  Report Type: Spontaneous
  Country: US (occurrence: US)
  Receive Date: 20180609
  Receipt Date: 20180609
  Transmission Date: 20180711
  Serious: Yes (Disabling)
  Sender: FDA-Public Use
  Company Number: None

PATIENT
  Age: 51 Year
  Sex: Female

DRUGS (1)
  1. MIRENA [Suspect]
     Active Substance: LEVONORGESTREL

REACTIONS (6)
  - Cervix oedema [None]
  - Uterine prolapse [None]
  - Menstrual disorder [None]
  - Device dislocation [None]
  - Pelvic inflammatory disease [None]
  - Condition aggravated [None]

NARRATIVE: CASE EVENT DATE: 20180320
